FAERS Safety Report 7765254-2 (Version None)
Quarter: 2011Q3

REPORT INFORMATION
  Report Type: 
  Country: None (occurrence: None)
  Receive Date: 20110921
  Receipt Date: 20110915
  Transmission Date: 20111222
  Serious: Yes (Life-Threatening, Hospitalization, Disabling)
  Sender: FDA-Public Use
  Company Number: JP-GLAXOSMITHKLINE-B0742469A

PATIENT
  Sex: Female
  Weight: 44 kg

DRUGS (4)
  1. LOXONIN [Concomitant]
     Dosage: 180MG PER DAY
     Route: 048
  2. ZOVIRAX [Suspect]
     Indication: HERPES ZOSTER
     Route: 042
  3. VALTREX [Suspect]
     Indication: HERPES ZOSTER
     Dosage: 3000MG PER DAY
     Route: 048
     Dates: start: 20110818, end: 20110821
  4. MUCOSTA [Concomitant]
     Dosage: 300MG PER DAY
     Route: 048

REACTIONS (2)
  - RENAL FAILURE [None]
  - ALTERED STATE OF CONSCIOUSNESS [None]
